FAERS Safety Report 15736699 (Version 1)
Quarter: 2018Q4

REPORT INFORMATION
  Report Type: Spontaneous
  Country: US (occurrence: US)
  Receive Date: 20181204
  Receipt Date: 20181204
  Transmission Date: 20190205
  Serious: Yes (Other)
  Sender: FDA-Public Use
  Company Number: None

PATIENT
  Age: 82 Year
  Sex: Female

DRUGS (7)
  1. VERZENIO [Suspect]
     Active Substance: ABEMACICLIB
     Indication: NEOPLASM MALIGNANT
     Route: 048
     Dates: start: 20181109
  2. XGEVA [Concomitant]
     Active Substance: DENOSUMAB
  3. ONDANSETRON [Concomitant]
     Active Substance: ONDANSETRON
  4. TURMERIC [Concomitant]
     Active Substance: HERBALS\TURMERIC
  5. VITAMIN D [Concomitant]
     Active Substance: CHOLECALCIFEROL
  6. BUPROPION. [Concomitant]
     Active Substance: BUPROPION
  7. ALPRAZOLAM. [Concomitant]
     Active Substance: ALPRAZOLAM

REACTIONS (6)
  - Fatigue [None]
  - Asthenia [None]
  - Headache [None]
  - Nausea [None]
  - Diarrhoea [None]
  - Pain [None]

NARRATIVE: CASE EVENT DATE: 20181204
